FAERS Safety Report 14575848 (Version 2)
Quarter: 2018Q2

REPORT INFORMATION
  Report Type: Spontaneous
  Country: FR (occurrence: FR)
  Receive Date: 20180227
  Receipt Date: 20180518
  Transmission Date: 20180711
  Serious: Yes (Other)
  Sender: FDA-Public Use
  Company Number: FR-AXELLIA-001428

PATIENT
  Age: 56 Year
  Sex: Male
  Weight: 108 kg

DRUGS (9)
  1. CORDARONE [Concomitant]
     Active Substance: AMIODARONE HYDROCHLORIDE
  2. EUPANTOL [Concomitant]
     Active Substance: PANTOPRAZOLE SODIUM
  3. VANCOMYCIN [Suspect]
     Active Substance: VANCOMYCIN
     Indication: ANTIBIOTIC THERAPY
     Route: 042
     Dates: start: 20180113, end: 20180130
  4. CEFOTAXIME [Suspect]
     Active Substance: CEFOTAXIME SODIUM
     Indication: ANTIBIOTIC THERAPY
     Route: 042
     Dates: start: 20180113, end: 20180130
  5. FUROSEMIDE. [Concomitant]
     Active Substance: FUROSEMIDE
  6. HEPARIN [Concomitant]
     Active Substance: HEPARIN SODIUM
  7. UNACIM (AMPICILLIN SODIUM\SULBACTAM SODIUM) [Suspect]
     Active Substance: AMPICILLIN SODIUM\SULBACTAM SODIUM
     Indication: ANTIBIOTIC THERAPY
     Dosage: STRENGTH: 1G?POWDER AND SOLUTION FOR PARENTERAL USE
     Route: 042
     Dates: start: 20180117, end: 20180130
  8. MATRIFEN [Concomitant]
     Active Substance: FENTANYL
  9. DEROXAT [Concomitant]
     Active Substance: PAROXETINE HYDROCHLORIDE

REACTIONS (3)
  - Rash [Recovered/Resolved]
  - Disturbance in attention [Recovered/Resolved]
  - Myoclonus [Recovered/Resolved]

NARRATIVE: CASE EVENT DATE: 20180130
